FAERS Safety Report 20204499 (Version 2)
Quarter: 2021Q4

REPORT INFORMATION
  Report Type: Report from Study
  Country: US (occurrence: US)
  Receive Date: 20211220
  Receipt Date: 20211222
  Transmission Date: 20220303
  Serious: Yes (Death, Hospitalization, Other)
  Sender: FDA-Public Use
  Company Number: US-ABBVIE-21K-163-4205074-00

PATIENT
  Sex: Male

DRUGS (2)
  1. DUOPA [Suspect]
     Active Substance: CARBIDOPA\LEVODOPA
     Indication: Parkinson^s disease
     Route: 050
     Dates: start: 20210503
  2. DUOPA [Suspect]
     Active Substance: CARBIDOPA\LEVODOPA

REACTIONS (17)
  - Parkinson^s disease [Fatal]
  - Ear infection [Unknown]
  - Multiple organ dysfunction syndrome [Unknown]
  - Haemoglobin decreased [Unknown]
  - Compression fracture [Unknown]
  - Joint dislocation [Unknown]
  - Trigger finger [Unknown]
  - Fall [Unknown]
  - Post procedural infection [Unknown]
  - Fall [Unknown]
  - Fall [Not Recovered/Not Resolved]
  - Balance disorder [Unknown]
  - Asthenia [Unknown]
  - Pain [Unknown]
  - Musculoskeletal stiffness [Unknown]
  - Trigger finger [Recovered/Resolved]
  - Pain in extremity [Unknown]

NARRATIVE: CASE EVENT DATE: 20210101
